FAERS Safety Report 4750711-3 (Version None)
Quarter: 2005Q3

REPORT INFORMATION
  Report Type: 
  Country: None (occurrence: None)
  Receive Date: 20050822
  Receipt Date: 20050808
  Transmission Date: 20060218
  Serious: Yes (Death, Hospitalization)
  Sender: FDA-Public Use
  Company Number: 2005113483

PATIENT
  Age: 77 Year
  Sex: Female
  Weight: 61.2356 kg

DRUGS (3)
  1. BEXTRA [Suspect]
     Indication: ARTHRITIS
     Dosage: 1 IN 1 D ORAL
     Route: 048
  2. ANTIHYPERTENSIVES [Concomitant]
  3. ANTIDEPRESSANTS [Concomitant]

REACTIONS (6)
  - CARDIAC DISORDER [None]
  - DEPRESSION [None]
  - DYSPNOEA [None]
  - POSTOPERATIVE RENAL FAILURE [None]
  - VASCULAR BYPASS GRAFT [None]
  - WHEEZING [None]
